FAERS Safety Report 21775541 (Version 1)
Quarter: 2022Q4

REPORT INFORMATION
  Report Type: Spontaneous
  Country: DE (occurrence: DE)
  Receive Date: 20221226
  Receipt Date: 20221226
  Transmission Date: 20230113
  Serious: Yes (Hospitalization, Other)
  Sender: FDA-Public Use
  Company Number: DE-ORGANON-O2212DEU000681

PATIENT
  Sex: Female

DRUGS (11)
  1. INFLIXIMAB [Suspect]
     Active Substance: INFLIXIMAB
     Indication: Product used for unknown indication
     Dosage: 1600 MG, BIW (800 MILLIGRAM, BIW (EVERY 2 WEEKS)
     Route: 065
     Dates: start: 20220106, end: 20220120
  2. NAPROXEN [Suspect]
     Active Substance: NAPROXEN
     Indication: Product used for unknown indication
     Dosage: 500 MG, QD (500 MILLIGRAM, QD)
     Route: 065
     Dates: start: 20220219, end: 20220226
  3. ETORICOXIB [Suspect]
     Active Substance: ETORICOXIB
     Indication: Psoriatic arthropathy
     Dosage: 120 MG,QD (120 MILLIGRAM, QD )
     Route: 048
     Dates: start: 20211214, end: 20220218
  4. ETORICOXIB [Suspect]
     Active Substance: ETORICOXIB
     Dosage: 120 MG,QD (120 MILLIGRAM, QD )
     Route: 048
     Dates: start: 20220227
  5. SIMPONI [Suspect]
     Active Substance: GOLIMUMAB
     Indication: Psoriatic arthropathy
     Dosage: 50 MG, Q4W (50 MILLIGRAM, EVERY 4 WEEKS) (STOP DATE: 09 MAR 2022)
     Route: 065
     Dates: start: 20220209
  6. STELARA [Concomitant]
     Active Substance: USTEKINUMAB
     Indication: Psoriatic arthropathy
     Dosage: 45 MG (45 MILLIGRAM, SATURATION, THEN EVERY 12 WEEKS)
     Route: 065
     Dates: start: 20211223
  7. PANTOPRAZOLE SODIUM [Concomitant]
     Active Substance: PANTOPRAZOLE SODIUM
     Indication: Product used for unknown indication
     Dosage: 40MG (40 MILLIGRAM)
     Route: 065
  8. VITAMIN D [Concomitant]
     Active Substance: VITAMIN D NOS
     Indication: Product used for unknown indication
     Dosage: UNK
     Route: 065
  9. PREDNISOLONE [Concomitant]
     Active Substance: PREDNISOLONE
     Indication: Product used for unknown indication
     Dosage: 20MG (20 MILLIGRAM)
     Route: 065
  10. PREDNISONE [Concomitant]
     Active Substance: PREDNISONE
     Indication: Product used for unknown indication
     Dosage: 5 MG (5 MILLIGRAM)
     Route: 065
  11. BISOPROLOL [Concomitant]
     Active Substance: BISOPROLOL
     Indication: Product used for unknown indication
     Dosage: 5 MG (5 MILLIGRAM)
     Route: 065

REACTIONS (6)
  - Arthralgia [Recovered/Resolved]
  - Dyspnoea at rest [Unknown]
  - Anaphylactic reaction [Unknown]
  - Anaphylactic reaction [Recovered/Resolved]
  - Dyspnoea exertional [Unknown]
  - Apathy [Unknown]

NARRATIVE: CASE EVENT DATE: 20220101
